FAERS Safety Report 9320021 (Version 3)
Quarter: 2013Q3

REPORT INFORMATION
  Report Type: Spontaneous
  Country: US (occurrence: US)
  Receive Date: 20130530
  Receipt Date: 20130807
  Transmission Date: 20140515
  Serious: No
  Sender: FDA-Public Use
  Company Number: US-JNJFOC-20130518489

PATIENT
  Sex: Male

DRUGS (4)
  1. INVEGA SUSTENNA [Suspect]
     Indication: PSYCHOTIC DISORDER
     Route: 030
     Dates: start: 20130110, end: 20130508
  2. COGENTIN [Concomitant]
     Indication: EXTRAPYRAMIDAL DISORDER
     Dosage: AS PER NECESSARY
     Route: 065
     Dates: start: 20130416
  3. DEPAKOTE [Concomitant]
     Indication: AFFECTIVE DISORDER
     Route: 065
     Dates: start: 20130423
  4. VISTARIL [Concomitant]
     Indication: ANXIETY
     Dosage: THRICE A DAY, AS PER NECESSARY
     Route: 065
     Dates: start: 20130430

REACTIONS (1)
  - Retrograde ejaculation [Unknown]
